APPROVED DRUG PRODUCT: CEFOTAN
Active Ingredient: CEFOTETAN DISODIUM
Strength: EQ 1GM BASE/VIAL
Dosage Form/Route: INJECTABLE;INJECTION
Application: A063293 | Product #001
Applicant: TELIGENT PHARMA INC
Approved: Apr 29, 1993 | RLD: No | RS: No | Type: DISCN